FAERS Safety Report 24869413 (Version 1)
Quarter: 2025Q1

REPORT INFORMATION
  Report Type: Spontaneous
  Country: US (occurrence: None)
  Receive Date: 20250117
  Receipt Date: 20250117
  Transmission Date: 20250409
  Serious: Yes (unspecified)
  Sender: FDA-CTU
  Company Number: None

PATIENT
  Age: 60 Year
  Sex: Female
  Weight: 54.1 kg

DRUGS (7)
  1. VITAMINS [Suspect]
     Active Substance: VITAMINS
     Indication: Enterocutaneous fistula
     Route: 041
  2. CLINISOL [Suspect]
     Active Substance: ALANINE\ARGININE\ASPARTIC ACID\GLUTAMIC ACID\GLYCINE\HISTIDINE\ISOLEUCINE\LEUCINE\LYSINE ACETATE\MET
     Indication: Enterocutaneous fistula
  3. FAT EMULSION NOS [Suspect]
     Active Substance: EGG PHOSPHOLIPIDS\SAFFLOWER OIL\SOYBEAN OIL
     Dates: start: 20250113, end: 20250113
  4. ENOXAPARIN [Suspect]
     Active Substance: ENOXAPARIN
  5. ZOSYN [Suspect]
     Active Substance: PIPERACILLIN SODIUM\TAZOBACTAM SODIUM
  6. EPINEPHRINE [Suspect]
     Active Substance: EPINEPHRINE
  7. Multivitamin + amino acids [Concomitant]

REACTIONS (10)
  - Hypotension [None]
  - Pruritus [None]
  - Nausea [None]
  - Dizziness [None]
  - Tachycardia [None]
  - Flushing [None]
  - Hyperhidrosis [None]
  - Pharyngeal swelling [None]
  - Tremor [None]
  - Drug hypersensitivity [None]

NARRATIVE: CASE EVENT DATE: 20250113
